FAERS Safety Report 7952588-1 (Version None)
Quarter: 2011Q4

REPORT INFORMATION
  Report Type: 
  Country: None (occurrence: None)
  Receive Date: 20111201
  Receipt Date: 20111128
  Transmission Date: 20120403
  Serious: Yes (Other)
  Sender: FDA-Public Use
  Company Number: ES-PFIZER INC-2010068455

PATIENT
  Age: 12 Year
  Sex: Male
  Weight: 25 kg

DRUGS (1)
  1. SOMATROPIN RDNA [Suspect]
     Indication: GROWTH RETARDATION
     Dosage: 0.6 MG, 1X/DAY
     Route: 058
     Dates: start: 20100312

REACTIONS (3)
  - BREAST INFLAMMATION [None]
  - BREAST PAIN [None]
  - BREAST MASS [None]
